FAERS Safety Report 7206421-6 (Version None)
Quarter: 2011Q1

REPORT INFORMATION
  Report Type: 
  Country: None (occurrence: None)
  Receive Date: 20110103
  Receipt Date: 20101221
  Transmission Date: 20110831
  Serious: Yes (Death, Other)
  Sender: FDA-Public Use
  Company Number: US-ELI_LILLY_AND_COMPANY-US201012005628

PATIENT
  Sex: Female

DRUGS (1)
  1. FORTEO [Suspect]

REACTIONS (11)
  - DEATH [None]
  - CHOKING [None]
  - COUGH [None]
  - GENERAL PHYSICAL HEALTH DETERIORATION [None]
  - RHONCHI [None]
  - WHEEZING [None]
  - RHINORRHOEA [None]
  - ARTHROPATHY [None]
  - JOINT SWELLING [None]
  - OROPHARYNGEAL PAIN [None]
  - ARTHRALGIA [None]
